FAERS Safety Report 8199058-6 (Version None)
Quarter: 2012Q1

REPORT INFORMATION
  Report Type: 
  Country: None (occurrence: None)
  Receive Date: 20120309
  Receipt Date: 20120229
  Transmission Date: 20120608
  Serious: Yes (Hospitalization)
  Sender: FDA-Public Use
  Company Number: FR-GLAXOSMITHKLINE-B0784823A

PATIENT
  Sex: Female

DRUGS (9)
  1. PAROXETINE HYDROCHLORIDE [Suspect]
     Indication: PRODUCT USED FOR UNKNOWN INDICATION
     Dosage: 10MG PER DAY
     Route: 048
     Dates: start: 20111220, end: 20120103
  2. VALSARTAN [Concomitant]
     Route: 065
  3. TRANSIPEG [Concomitant]
     Route: 065
  4. IMOVANE [Suspect]
     Indication: PRODUCT USED FOR UNKNOWN INDICATION
     Dosage: 7.5MG PER DAY
     Route: 048
     Dates: start: 20101001, end: 20111226
  5. ASPIRIN [Concomitant]
     Route: 065
  6. PANTOPRAZOLE [Concomitant]
     Route: 065
  7. DOMPERIDONE [Suspect]
     Indication: PRODUCT USED FOR UNKNOWN INDICATION
     Dosage: 20MG THREE TIMES PER DAY
     Route: 048
     Dates: start: 20111220, end: 20120103
  8. ACETAMINOPHEN [Concomitant]
     Route: 065
  9. PRAVASTATIN [Concomitant]
     Route: 065

REACTIONS (5)
  - PARKINSONISM [None]
  - FALL [None]
  - RHABDOMYOLYSIS [None]
  - FACE INJURY [None]
  - MALAISE [None]
